FAERS Safety Report 5817663-6 (Version None)
Quarter: 2008Q3

REPORT INFORMATION
  Report Type: 
  Country: None (occurrence: None)
  Receive Date: 20080716
  Receipt Date: 20080701
  Transmission Date: 20090109
  Serious: No
  Sender: FDA-Public Use
  Company Number: 230683K07CAN

PATIENT
  Sex: Female

DRUGS (6)
  1. REBIF [Suspect]
     Indication: MULTIPLE SCLEROSIS
     Dates: start: 20011022, end: 20070901
  2. REBIF [Suspect]
     Indication: MULTIPLE SCLEROSIS
     Dates: start: 20070924, end: 20071022
  3. REBIF [Suspect]
     Indication: MULTIPLE SCLEROSIS
     Dates: start: 20080101, end: 20080401
  4. BACLOFEN [Concomitant]
  5. DIXARIT (CLONIDINE HYDROCHLORIDE) [Concomitant]
  6. ARIMIDEX [Concomitant]

REACTIONS (1)
  - RASH [None]
